FAERS Safety Report 8965914 (Version 1)
Quarter: 2012Q4

REPORT INFORMATION
  Report Type: 
  Country: US (occurrence: US)
  Receive Date: 20121217
  Receipt Date: 20121217
  Transmission Date: 20130627
  Serious: Yes (Other)
  Sender: FDA-Public Use
  Company Number: US-AMGEN-USASP2012080012

PATIENT
  Age: 65 Year
  Sex: Female
  Weight: 68.93 kg

DRUGS (3)
  1. ENBREL [Suspect]
     Indication: RHEUMATOID ARTHRITIS
     Dosage: 25 mg, 2 times/wk
     Dates: start: 2006, end: 201204
  2. METHOTREXATE [Concomitant]
     Dosage: UNK
     Dates: start: 2001, end: 2004
  3. LIPITOR [Concomitant]
     Dosage: UNK

REACTIONS (1)
  - Plasma cell myeloma [Unknown]
